FAERS Safety Report 15885069 (Version 2)
Quarter: 2019Q1

REPORT INFORMATION
  Report Type: Spontaneous
  Country: US (occurrence: US)
  Receive Date: 20190129
  Receipt Date: 20190307
  Transmission Date: 20190417
  Serious: No
  Sender: FDA-Public Use
  Company Number: US-PFIZER INC-2019035721

PATIENT
  Sex: Female
  Weight: 91 kg

DRUGS (1)
  1. TOVIAZ [Suspect]
     Active Substance: FESOTERODINE FUMARATE
     Indication: URINARY INCONTINENCE
     Dosage: 8 MG, DAILY
     Route: 048

REACTIONS (5)
  - Genital rash [Recovering/Resolving]
  - Pain of skin [Unknown]
  - Genital infection fungal [Recovering/Resolving]
  - Skin haemorrhage [Unknown]
  - Rash [Unknown]

NARRATIVE: CASE EVENT DATE: 2018
